FAERS Safety Report 10909616 (Version 1)
Quarter: 2015Q1

REPORT INFORMATION
  Report Type: Spontaneous
  Country: US (occurrence: US)
  Receive Date: 20150312
  Receipt Date: 20150312
  Transmission Date: 20150721
  Serious: No
  Sender: FDA-Public Use
  Company Number: US-SA-2014SA067755

PATIENT
  Age: 78 Year
  Sex: Male

DRUGS (1)
  1. NASACORT ALLERGY 24HR [Suspect]
     Active Substance: TRIAMCINOLONE ACETONIDE
     Indication: NASAL CONGESTION
     Dosage: TAKEN FROM:  1 WEEK AGO?DOSE: 120 SPRAY
     Route: 065

REACTIONS (2)
  - Therapeutic reaction time decreased [Unknown]
  - Insomnia [Unknown]
